FAERS Safety Report 24704905 (Version 1)
Quarter: 2024Q4

REPORT INFORMATION
  Report Type: Spontaneous
  Country: JP (occurrence: JP)
  Receive Date: 20241206
  Receipt Date: 20241206
  Transmission Date: 20250114
  Serious: Yes (Hospitalization, Other)
  Sender: RECORDATI
  Company Number: JP-RECORDATI RARE DISEASE INC.-2024009542

PATIENT

DRUGS (8)
  1. ISTURISA [Suspect]
     Active Substance: OSILODROSTAT PHOSPHATE
     Indication: Ectopic ACTH syndrome
     Dosage: UNK (LOW DOSE)
  2. ISTURISA [Suspect]
     Active Substance: OSILODROSTAT PHOSPHATE
     Indication: Malignant mediastinal neoplasm
     Dosage: UNK (DOSE INCREASED)
  3. ISTURISA [Suspect]
     Active Substance: OSILODROSTAT PHOSPHATE
     Dosage: 7 MG
  4. TRILOSTANE [Concomitant]
     Active Substance: TRILOSTANE
     Indication: Ectopic ACTH syndrome
     Dosage: 360 MILLIGRAMS PER DAY
  5. TRILOSTANE [Concomitant]
     Active Substance: TRILOSTANE
     Indication: Malignant mediastinal neoplasm
  6. EVEROLIMUS [Concomitant]
     Active Substance: EVEROLIMUS
     Indication: Multiple endocrine neoplasia Type 1
     Dosage: UNK
  7. ZANOSAR [Concomitant]
     Active Substance: STREPTOZOCIN
     Indication: Multiple endocrine neoplasia Type 1
     Dosage: UNK
  8. FLUOROURACIL [Concomitant]
     Active Substance: FLUOROURACIL
     Indication: Multiple endocrine neoplasia Type 1
     Dosage: UNK

REACTIONS (2)
  - Metastases to spine [Unknown]
  - Diplegia [Unknown]
